FAERS Safety Report 25852667 (Version 2)
Quarter: 2025Q4

REPORT INFORMATION
  Report Type: Spontaneous
  Country: CN (occurrence: CN)
  Receive Date: 20250926
  Receipt Date: 20251014
  Transmission Date: 20260118
  Serious: Yes (Other)
  Sender: RANBAXY
  Company Number: CN-SUN PHARMACEUTICAL INDUSTRIES LTD-2025R1-528916

PATIENT
  Age: 71 Year
  Sex: Male

DRUGS (3)
  1. CARBOPLATIN [Suspect]
     Active Substance: CARBOPLATIN
     Indication: Lung adenocarcinoma
     Dosage: 400 MILLIGRAM
     Route: 065
     Dates: start: 20240521, end: 20240731
  2. PEMETREXED [Suspect]
     Active Substance: PEMETREXED
     Indication: Lung adenocarcinoma
     Dosage: 0.8 GRAM FOUR TREATMENT CYCLES
     Route: 065
     Dates: start: 20240521, end: 20240731
  3. PEMETREXED [Suspect]
     Active Substance: PEMETREXED
     Dosage: 0.8 GRAM  TWO COURSES
     Route: 065
     Dates: start: 20240823, end: 20240921

REACTIONS (1)
  - Neoplasm progression [Unknown]
